FAERS Safety Report 17419618 (Version 1)
Quarter: 2020Q1

REPORT INFORMATION
  Report Type: Spontaneous
  Country: US (occurrence: US)
  Receive Date: 20200214
  Receipt Date: 20200214
  Transmission Date: 20200409
  Serious: Yes (Other)
  Sender: FDA-Public Use
  Company Number: US-ELI_LILLY_AND_COMPANY-US202002002969

PATIENT
  Age: 77 Year
  Sex: Female

DRUGS (2)
  1. HUMALOG [Suspect]
     Active Substance: INSULIN LISPRO
     Indication: TYPE 2 DIABETES MELLITUS
     Dosage: UNK UNK, PRN (TID, MORNING)
     Route: 058
     Dates: start: 201807
  2. BASAGLAR [Suspect]
     Active Substance: INSULIN GLARGINE
     Indication: TYPE 2 DIABETES MELLITUS
     Dosage: UNK UNK, PRN (TID, NIGHT)
     Route: 058
     Dates: start: 201807

REACTIONS (8)
  - Oesophageal achalasia [Recovered/Resolved]
  - Rotator cuff syndrome [Unknown]
  - Pain [Unknown]
  - Malaise [Unknown]
  - Road traffic accident [Unknown]
  - Ligament disorder [Unknown]
  - Blood glucose decreased [Recovered/Resolved]
  - Bladder prolapse [Recovering/Resolving]
